FAERS Safety Report 5112633-8 (Version None)
Quarter: 2006Q3

REPORT INFORMATION
  Report Type: 
  Country: None (occurrence: None)
  Receive Date: 20060922
  Receipt Date: 20060914
  Transmission Date: 20061208
  Serious: Yes (Hospitalization, Disabling, Other)
  Sender: FDA-Public Use
  Company Number: 2006AC01693

PATIENT
  Age: 25370 Day
  Sex: Male
  Weight: 75 kg

DRUGS (2)
  1. MARCAINE [Suspect]
     Indication: HIP ARTHROPLASTY
     Dosage: 0.5%
     Route: 037
     Dates: start: 20060822, end: 20060822
  2. CHIROCAINE [Concomitant]
     Indication: EPIDURAL ANAESTHESIA
     Route: 008
     Dates: start: 20060822, end: 20060824

REACTIONS (1)
  - CAUDA EQUINA SYNDROME [None]
